FAERS Safety Report 20940396 (Version 1)
Quarter: 2022Q2

REPORT INFORMATION
  Report Type: Report from Study
  Country: EG (occurrence: EG)
  Receive Date: 20220609
  Receipt Date: 20220609
  Transmission Date: 20220721
  Serious: Yes (Other)
  Sender: FDA-Public Use
  Company Number: EG-NOVARTISPH-NVSC2022EG022989

PATIENT
  Sex: Male

DRUGS (14)
  1. ENTRESTO [Suspect]
     Active Substance: SACUBITRIL\VALSARTAN
     Indication: Cardiac failure
     Dosage: 200 UNK, BID
     Route: 048
     Dates: start: 20190401
  2. UNSPECIFIED INGREDIENT [Concomitant]
     Active Substance: UNSPECIFIED INGREDIENT
     Indication: Vision blurred
     Dosage: UNK (TAKES 20 MEDICATION)
     Route: 065
  3. METOPROLOL SUCCINATE [Concomitant]
     Active Substance: METOPROLOL SUCCINATE
     Indication: Hypertension
     Dosage: 1 DOSAGE FORM, QD
     Route: 048
     Dates: start: 2012
  4. PANTOPRAZOLE SODIUM [Concomitant]
     Active Substance: PANTOPRAZOLE SODIUM
     Indication: Abdominal discomfort
     Dosage: 1 DOSAGE FORM, QD
     Route: 048
     Dates: start: 2012
  5. EXAMIDE [Concomitant]
     Indication: Polyuria
     Dosage: 1 DOSAGE FORM, QD
     Route: 048
     Dates: start: 2012
  6. EXAMIDE [Concomitant]
     Indication: Vessel perforation
  7. PLENDIL [Concomitant]
     Active Substance: FELODIPINE
     Indication: Polyuria
     Dosage: 1 DOSAGE FORM, QD
     Route: 048
     Dates: start: 2012
  8. PLENDIL [Concomitant]
     Active Substance: FELODIPINE
     Indication: Vessel perforation
  9. CARFALONE [Concomitant]
     Indication: Polyuria
     Dosage: 1 DOSAGE FORM, QD
     Route: 048
     Dates: start: 2012
  10. CARFALONE [Concomitant]
     Indication: Vessel perforation
  11. ALLOPURINOL [Concomitant]
     Active Substance: ALLOPURINOL
     Indication: Blood uric acid increased
     Dosage: 1 DOSAGE FORM, QD
     Route: 048
     Dates: start: 2012
  12. CRESTOR [Concomitant]
     Active Substance: ROSUVASTATIN CALCIUM
     Indication: Blood cholesterol
     Dosage: 1 DOSAGE FORM, QD
     Route: 048
     Dates: start: 2012
  13. APIDRA [Concomitant]
     Active Substance: INSULIN GLULISINE
     Indication: Diabetes mellitus
     Dosage: UNK, PEN
     Route: 065
     Dates: start: 2012
  14. ISOPHANE INSULIN [Concomitant]
     Active Substance: INSULIN NOS
     Indication: Diabetes mellitus
     Dosage: UNK, PEN
     Route: 065
     Dates: start: 2012

REACTIONS (5)
  - Myocardial necrosis marker increased [Unknown]
  - Vision blurred [Recovering/Resolving]
  - Gingival swelling [Recovering/Resolving]
  - Blood viscosity abnormal [Unknown]
  - Gingival bleeding [Not Recovered/Not Resolved]
